FAERS Safety Report 5381443-9 (Version None)
Quarter: 2007Q2

REPORT INFORMATION
  Report Type: 
  Country: None (occurrence: None)
  Receive Date: 20070629
  Receipt Date: 20070426
  Transmission Date: 20071010
  Serious: Yes (Other)
  Sender: FDA-Public Use
  Company Number: US200704005948

PATIENT
  Sex: Female

DRUGS (3)
  1. HUMALOG PEN [Suspect]
     Dates: start: 19960101
  2. HUMALOG PEN [Suspect]
     Dates: start: 19960101
  3. LANTUS [Concomitant]

REACTIONS (2)
  - BLOOD GLUCOSE INCREASED [None]
  - DIALYSIS [None]
